FAERS Safety Report 19275931 (Version 2)
Quarter: 2021Q2

REPORT INFORMATION
  Report Type: Spontaneous
  Country: US (occurrence: US)
  Receive Date: 20210519
  Receipt Date: 20210618
  Transmission Date: 20210717
  Serious: Yes (Hospitalization, Other)
  Sender: FDA-Public Use
  Company Number: US-ORGANON-O2105USA001491

PATIENT
  Age: 26 Year
  Sex: Female

DRUGS (2)
  1. NEXPLANON [Suspect]
     Active Substance: ETONOGESTREL
     Dosage: 1 IMPLANT, IN THE LEFT UPPER ARM
     Dates: start: 201909, end: 202002
  2. NEXPLANON [Suspect]
     Active Substance: ETONOGESTREL
     Dosage: 1 IMPLANT, IN THE LEFT UPPER ARM
     Dates: start: 201609, end: 201909

REACTIONS (10)
  - Neuralgia [Unknown]
  - Tremor [Unknown]
  - Complication associated with device [Recovered/Resolved]
  - Surgery [Unknown]
  - Muscle twitching [Unknown]
  - Complication of device removal [Recovered/Resolved]
  - Surgery [Unknown]
  - Hypoaesthesia [Not Recovered/Not Resolved]
  - Hypoaesthesia [Unknown]
  - Nerve injury [Unknown]

NARRATIVE: CASE EVENT DATE: 201909
